FAERS Safety Report 7120765-8 (Version None)
Quarter: 2010Q4

REPORT INFORMATION
  Report Type: 
  Country: None (occurrence: None)
  Receive Date: 20101124
  Receipt Date: 20101117
  Transmission Date: 20110411
  Serious: Yes (Hospitalization)
  Sender: FDA-Public Use
  Company Number: BR-ABBOTT-10P-020-0686190-00

PATIENT
  Sex: Female
  Weight: 37 kg

DRUGS (2)
  1. HUMIRA [Suspect]
     Indication: RHEUMATOID ARTHRITIS
     Route: 058
     Dates: start: 20050324, end: 20100801
  2. COMBINED: AMITRIPTYLINE, FOLIC ACID, PREDNISONE, AND RANITIDINE [Concomitant]
     Indication: RHEUMATOID ARTHRITIS
     Dosage: 12. 5MG, 0.5MG, 2.5MG, 150MG, 2 IN 24 HR
     Route: 048
     Dates: start: 20050101

REACTIONS (3)
  - CHEST X-RAY ABNORMAL [None]
  - COUGH [None]
  - NASOPHARYNGITIS [None]
